FAERS Safety Report 23130314 (Version 2)
Quarter: 2023Q4

REPORT INFORMATION
  Report Type: Spontaneous
  Country: CZ (occurrence: CZ)
  Receive Date: 20231031
  Receipt Date: 20231122
  Transmission Date: 20240110
  Serious: Yes (Other)
  Sender: FDA-Public Use
  Company Number: CZ-SUN PHARMACEUTICAL INDUSTRIES LTD-2023RR-411173

PATIENT
  Age: 50 Year
  Sex: Male

DRUGS (4)
  1. OXALIPLATIN [Suspect]
     Active Substance: OXALIPLATIN
     Indication: Pancreatic carcinoma
     Dosage: 6 COURSES
     Dates: start: 202101, end: 202104
  2. LEUCOVORIN CALCIUM [Suspect]
     Active Substance: LEUCOVORIN CALCIUM
     Indication: Pancreatic carcinoma
     Dosage: UNK
     Dates: start: 202101, end: 202104
  3. FLUOROURACIL [Suspect]
     Active Substance: FLUOROURACIL
     Indication: Pancreatic carcinoma
     Dosage: 6 COURSES
     Dates: start: 202101, end: 202104
  4. IRINOTECAN HYDROCHLORIDE [Suspect]
     Active Substance: IRINOTECAN HYDROCHLORIDE
     Indication: Pancreatic carcinoma
     Dosage: 6 COURSES
     Dates: start: 202101, end: 202104

REACTIONS (2)
  - Thrombosis [Unknown]
  - Pulmonary embolism [Unknown]
